FAERS Safety Report 24064000 (Version 1)
Quarter: 2024Q3

REPORT INFORMATION
  Report Type: Spontaneous
  Country: IT (occurrence: IT)
  Receive Date: 20240709
  Receipt Date: 20240709
  Transmission Date: 20241017
  Serious: Yes (Other)
  Sender: NOVARTIS
  Company Number: None

PATIENT
  Age: 81 Year
  Sex: Female
  Weight: 68 kg

DRUGS (7)
  1. BEOVU [Suspect]
     Active Substance: BROLUCIZUMAB-DBLL
     Indication: Neovascular age-related macular degeneration
     Dosage: 1 DOSAGE FORM
     Route: 031
     Dates: start: 20220321, end: 20220321
  2. BEOVU [Suspect]
     Active Substance: BROLUCIZUMAB-DBLL
     Dosage: 1 DOSAGE FORM
     Route: 031
     Dates: start: 20220706, end: 20220706
  3. BEOVU [Suspect]
     Active Substance: BROLUCIZUMAB-DBLL
     Dosage: 1 DOSAGE FORM
     Route: 031
     Dates: start: 20230220, end: 20230220
  4. BEOVU [Suspect]
     Active Substance: BROLUCIZUMAB-DBLL
     Dosage: 1 DOSAGE FORM
     Route: 031
     Dates: start: 20230605, end: 20230605
  5. BEOVU [Suspect]
     Active Substance: BROLUCIZUMAB-DBLL
     Dosage: 1 DOSAGE FORM
     Route: 031
     Dates: start: 20240111, end: 20240111
  6. NORVASC [Concomitant]
     Active Substance: AMLODIPINE BESYLATE
     Indication: Hypertension
     Dosage: 10 MG, Q24H
     Route: 048
  7. RAMIPRIL [Concomitant]
     Active Substance: RAMIPRIL
     Indication: Hypertension
     Dosage: 5 MG, Q24H
     Route: 048

REACTIONS (4)
  - Retinal oedema [Not Recovered/Not Resolved]
  - Condition aggravated [Not Recovered/Not Resolved]
  - Detachment of retinal pigment epithelium [Not Recovered/Not Resolved]
  - Therapeutic product effect decreased [Not Recovered/Not Resolved]

NARRATIVE: CASE EVENT DATE: 20240523
